FAERS Safety Report 7581367-2 (Version None)
Quarter: 2011Q2

REPORT INFORMATION
  Report Type: 
  Country: None (occurrence: None)
  Receive Date: 20110629
  Receipt Date: 20110624
  Transmission Date: 20111010
  Serious: Yes (Other)
  Sender: FDA-Public Use
  Company Number: US-PFIZER INC-2011141313

PATIENT
  Sex: Male
  Weight: 100 kg

DRUGS (16)
  1. LYRICA [Suspect]
     Indication: DIABETIC NEUROPATHY
     Dosage: 150 MG, 2X/DAY
     Route: 048
     Dates: start: 20060101
  2. CADUET [Concomitant]
     Indication: BLOOD TRIGLYCERIDES INCREASED
  3. RITALIN [Concomitant]
     Indication: ATTENTION DEFICIT/HYPERACTIVITY DISORDER
     Dosage: 20 MG, 2X/DAY
     Route: 048
  4. XANAX [Concomitant]
     Indication: SEDATIVE THERAPY
     Dosage: UNK, DAILY
  5. NAPROXEN SODIUM [Concomitant]
     Indication: SPINAL FRACTURE
     Dosage: 220 MG, UNK
  6. ASPIRIN [Concomitant]
     Indication: ANTICOAGULANT THERAPY
     Dosage: 325 MG, DAILY
  7. DEXILANT [Concomitant]
     Indication: GASTROOESOPHAGEAL REFLUX DISEASE
     Dosage: 30 MG, DAILY
     Route: 048
  8. LORATADINE [Concomitant]
     Indication: HYPERSENSITIVITY
     Dosage: 10 MG, DAILY
  9. OXYCODONE [Concomitant]
     Indication: DIABETIC NEUROPATHY
     Dosage: 15 MG, DAILY
  10. SYNTHROID [Concomitant]
     Indication: HYPERTHYROIDISM
     Dosage: 75 UG, DAILY
     Route: 048
  11. DEPAKOTE [Concomitant]
     Indication: DEPRESSION
     Dosage: 250MG IN MORNING AND 500MG AT NIGHT
  12. DIOVAN [Concomitant]
     Indication: HYPERTENSION
     Dosage: UNK, DAILY
     Route: 048
  13. CADUET [Concomitant]
     Indication: HYPERTENSION
     Dosage: 5/10 MG, DAILY
     Route: 048
  14. SERTRALINE [Concomitant]
     Indication: DEPRESSION
     Dosage: 50 MG, DAILY
  15. CYCLOBENZAPRINE [Concomitant]
     Indication: MUSCLE SPASMS
     Dosage: 10 MG, UNK
  16. REGLAN [Concomitant]
     Indication: IMPAIRED GASTRIC EMPTYING
     Dosage: 10 MG, UNK

REACTIONS (3)
  - DYSKINESIA [None]
  - PAIN [None]
  - NAUSEA [None]
